FAERS Safety Report 12114782 (Version 1)
Quarter: 2016Q1

REPORT INFORMATION
  Report Type: Spontaneous
  Country: US (occurrence: US)
  Receive Date: 20160225
  Receipt Date: 20160225
  Transmission Date: 20160526
  Serious: No
  Sender: FDA-Public Use
  Company Number: US-BAYER-2016-036740

PATIENT
  Age: 44 Year
  Sex: Female

DRUGS (2)
  1. ULTRAVIST [Suspect]
     Active Substance: IOPROMIDE
     Indication: COMPUTERISED TOMOGRAM ABDOMEN
     Dosage: 81 UNK, ONCE
     Dates: start: 20150705, end: 20150705
  2. ULTRAVIST [Suspect]
     Active Substance: IOPROMIDE
     Indication: COMPUTERISED TOMOGRAM PELVIS

REACTIONS (4)
  - Throat irritation [None]
  - Pruritus [None]
  - Urticaria [None]
  - Sneezing [None]

NARRATIVE: CASE EVENT DATE: 20150705
